FAERS Safety Report 25360826 (Version 1)
Quarter: 2025Q2

REPORT INFORMATION
  Report Type: Spontaneous
  Country: US (occurrence: US)
  Receive Date: 20250527
  Receipt Date: 20250527
  Transmission Date: 20250717
  Serious: No
  Sender: TOLMAR
  Company Number: CID000000000000237

PATIENT
  Age: 69 Year
  Sex: Female
  Weight: 76.7 kg

DRUGS (2)
  1. ELIGARD [Suspect]
     Active Substance: LEUPROLIDE ACETATE
     Indication: Product use in unapproved indication
     Dates: start: 20250410
  2. DEVICE [Suspect]
     Active Substance: DEVICE
     Indication: Product use in unapproved indication

REACTIONS (2)
  - Off label use [Unknown]
  - Device issue [Unknown]
